FAERS Safety Report 14171854 (Version 1)
Quarter: 2017Q4

REPORT INFORMATION
  Report Type: Spontaneous
  Country: US (occurrence: US)
  Receive Date: 20171108
  Receipt Date: 20171108
  Transmission Date: 20180321
  Serious: Yes (Other)
  Sender: FDA-Public Use
  Company Number: US-BEH-2017084873

PATIENT
  Age: 44 Year
  Sex: Male

DRUGS (1)
  1. HUMAN IMMUNOGLOBULIN IV (INN) [Suspect]
     Active Substance: HUMAN IMMUNOGLOBULIN G
     Indication: IMMUNE THROMBOCYTOPENIC PURPURA
     Dosage: 1000 MG/KG, QD
     Route: 042

REACTIONS (3)
  - Antibody test positive [Recovered/Resolved]
  - Coombs positive haemolytic anaemia [Recovered/Resolved]
  - Drug ineffective [Unknown]
